FAERS Safety Report 6641392-2 (Version None)
Quarter: 2010Q1

REPORT INFORMATION
  Report Type: 
  Country: None (occurrence: None)
  Receive Date: 20100318
  Receipt Date: 20100311
  Transmission Date: 20100710
  Serious: Yes (Other)
  Sender: FDA-Public Use
  Company Number: JP-ROCHE-684642

PATIENT
  Sex: Male
  Weight: 64.3 kg

DRUGS (3)
  1. PEGASYS [Suspect]
     Indication: HEPATITIS C
     Dosage: FORM REPORTED AS INJECTION
     Route: 058
     Dates: start: 20100107
  2. COPEGUS [Suspect]
     Indication: HEPATITIS C
     Route: 058
     Dates: start: 20100107
  3. INSULIN [Concomitant]
     Dosage: FORM REPORTED AS INJECTION, DOSE REPORTED: 24 IU.DRUG REPORTED: HUMALOG
     Route: 058

REACTIONS (1)
  - FACIAL PALSY [None]
